FAERS Safety Report 5419801-6 (Version None)
Quarter: 2007Q3

REPORT INFORMATION
  Report Type: 
  Country: None (occurrence: None)
  Receive Date: 20070820
  Receipt Date: 20070627
  Transmission Date: 20080115
  Serious: Yes (Hospitalization)
  Sender: FDA-Public Use
  Company Number: CA-ASTRAZENECA-2007UW15233

PATIENT
  Age: 766 Month
  Sex: Male
  Weight: 77.5 kg

DRUGS (3)
  1. AZD2171 [Suspect]
     Indication: MALIGNANT MELANOMA
     Route: 048
     Dates: start: 20070303, end: 20070606
  2. AZD2171 [Suspect]
     Route: 048
     Dates: start: 20070303, end: 20070606
  3. DECADRON [Suspect]

REACTIONS (3)
  - DEHYDRATION [None]
  - DIARRHOEA [None]
  - WEIGHT DECREASED [None]
